FAERS Safety Report 21924419 (Version 1)
Quarter: 2023Q1

REPORT INFORMATION
  Report Type: Spontaneous
  Country: CA (occurrence: CA)
  Receive Date: 20230130
  Receipt Date: 20230130
  Transmission Date: 20230418
  Serious: Yes (Death, Other)
  Sender: FDA-Public Use
  Company Number: CA-SAMSUNG BIOEPIS-SB-2023-01892

PATIENT
  Age: 79 Year
  Sex: Male

DRUGS (1)
  1. INFLIXIMAB [Suspect]
     Active Substance: INFLIXIMAB
     Indication: Ankylosing spondylitis
     Route: 042

REACTIONS (5)
  - Death [Fatal]
  - Illness [Fatal]
  - Non-small cell lung cancer metastatic [Fatal]
  - Intentional product use issue [Fatal]
  - Off label use [Fatal]
